FAERS Safety Report 20838231 (Version 1)
Quarter: 2022Q2

REPORT INFORMATION
  Report Type: Spontaneous
  Country: FR (occurrence: FR)
  Receive Date: 20220517
  Receipt Date: 20220517
  Transmission Date: 20220721
  Serious: Yes (Other)
  Sender: FDA-Public Use
  Company Number: FR-ORGANON-O2205FRA001194

PATIENT
  Age: 15 Year
  Sex: Female

DRUGS (1)
  1. NEXPLANON [Suspect]
     Active Substance: ETONOGESTREL
     Dosage: 1 IMPLANT IN LEFT ARM
     Route: 059
     Dates: start: 20210531

REACTIONS (4)
  - Device dislocation [Not Recovered/Not Resolved]
  - Implant site pain [Unknown]
  - Heavy menstrual bleeding [Not Recovered/Not Resolved]
  - Implant site bruising [Unknown]

NARRATIVE: CASE EVENT DATE: 20210601
